FAERS Safety Report 9608488 (Version 2)
Quarter: 2014Q1

REPORT INFORMATION
  Report Type: Spontaneous
  Country: AU (occurrence: AU)
  Receive Date: 20131009
  Receipt Date: 20140331
  Transmission Date: 20141002
  Serious: Yes (Death, Other)
  Sender: FDA-Public Use
  Company Number: AU-BAYER-2013-120679

PATIENT
  Age: 78 Year
  Sex: Male

DRUGS (2)
  1. ULTRAVIST 370 [Suspect]
     Indication: ANGIOGRAM
     Dosage: 100 ML, ONCE
  2. ULTRAVIST 370 [Suspect]
     Indication: AORTIC ANEURYSM

REACTIONS (6)
  - Acute febrile neutrophilic dermatosis [None]
  - Hypersensitivity [None]
  - Sialoadenitis [Recovering/Resolving]
  - Aortic aneurysm rupture [Fatal]
  - Abdominal pain [Fatal]
  - Circulatory collapse [Fatal]
